FAERS Safety Report 14766871 (Version 2)
Quarter: 2018Q2

REPORT INFORMATION
  Report Type: Report from Study
  Country: None (occurrence: CZ)
  Receive Date: 20180417
  Receipt Date: 20180515
  Transmission Date: 20180711
  Serious: Yes (Other)
  Sender: FDA-Public Use
  Company Number: CZ-ABBVIE-18K-217-2322976-00

PATIENT
  Age: 35 Year
  Sex: Female
  Weight: 103 kg

DRUGS (2)
  1. HUMIRA [Suspect]
     Active Substance: ADALIMUMAB
     Indication: PSORIATIC ARTHROPATHY
     Route: 058
     Dates: start: 20080220, end: 20170731
  2. HUMIRA [Suspect]
     Active Substance: ADALIMUMAB
     Route: 058
     Dates: start: 20170901

REACTIONS (2)
  - Vitreous haemorrhage [Unknown]
  - Enophthalmos [Recovered/Resolved]

NARRATIVE: CASE EVENT DATE: 20170825
